FAERS Safety Report 7306363-1 (Version None)
Quarter: 2011Q1

REPORT INFORMATION
  Report Type: 
  Country: None (occurrence: None)
  Receive Date: 20110210
  Receipt Date: 20110126
  Transmission Date: 20110831
  Serious: Yes (Hospitalization)
  Sender: FDA-Public Use
  Company Number: 1000018617

PATIENT
  Age: 37 Year
  Sex: Female

DRUGS (1)
  1. MILNACIPRAN (MILNACIPRAN HYDROCHLORIDE) (TABLETS) [Suspect]
     Indication: PRODUCT USED FOR UNKNOWN INDICATION
     Dosage: ORAL
     Route: 048
     Dates: start: 20081001, end: 20081101

REACTIONS (4)
  - ERYTHEMA MULTIFORME [None]
  - LEUKOPENIA [None]
  - LIVER DISORDER [None]
  - THROMBOCYTOPENIA [None]
